FAERS Safety Report 25797525 (Version 4)
Quarter: 2025Q4

REPORT INFORMATION
  Report Type: Report from Study
  Country: CA (occurrence: CA)
  Receive Date: 20250912
  Receipt Date: 20251225
  Transmission Date: 20260118
  Serious: Yes (Other)
  Sender: TAKEDA
  Company Number: CA-TAKEDA-2025TUS067431

PATIENT
  Age: 76 Year
  Sex: Male

DRUGS (9)
  1. VEDOLIZUMAB [Suspect]
     Active Substance: VEDOLIZUMAB
     Indication: Colitis ulcerative
     Dosage: 300 MILLIGRAM
  2. VEDOLIZUMAB [Suspect]
     Active Substance: VEDOLIZUMAB
     Dosage: 300 MILLIGRAM
  3. VEDOLIZUMAB [Suspect]
     Active Substance: VEDOLIZUMAB
     Dosage: 300 MILLIGRAM
  4. MESALAMINE [Suspect]
     Active Substance: MESALAMINE
     Indication: Product used for unknown indication
     Dosage: UNK
  5. PREDNISONE [Concomitant]
     Active Substance: PREDNISONE
     Dosage: UNK
  6. MESALAMINE [Concomitant]
     Active Substance: MESALAMINE
     Dosage: UNK
  7. AURO QUETIAPINE [Concomitant]
     Indication: Anxiety
     Dosage: UNK
  8. NITRAZEPAM [Concomitant]
     Active Substance: NITRAZEPAM
     Indication: Anxiety
     Dosage: UNK
  9. RIVAROXABAN [Concomitant]
     Active Substance: RIVAROXABAN
     Dosage: UNK

REACTIONS (14)
  - Haematochezia [Unknown]
  - Rectal haemorrhage [Unknown]
  - Eye swelling [Recovered/Resolved]
  - Vascular rupture [Recovered/Resolved]
  - Infusion site swelling [Recovered/Resolved]
  - Mass [Unknown]
  - Infusion site bruising [Recovered/Resolved]
  - Contusion [Recovered/Resolved]
  - Phlebitis [Recovered/Resolved]
  - Alopecia [Recovered/Resolved]
  - Oral herpes [Unknown]
  - Urine abnormality [Unknown]
  - Drug ineffective [Not Recovered/Not Resolved]
  - Epistaxis [Recovered/Resolved]
